FAERS Safety Report 7275853-2 (Version None)
Quarter: 2011Q1

REPORT INFORMATION
  Report Type: 
  Country: None (occurrence: None)
  Receive Date: 20110204
  Receipt Date: 20101011
  Transmission Date: 20110831
  Serious: Yes (Life-Threatening, Hospitalization, Other)
  Sender: FDA-Public Use
  Company Number: US-BAYER-200922627NA

PATIENT
  Sex: Female
  Weight: 44 kg

DRUGS (40)
  1. INDERAL [Concomitant]
     Indication: CARDIAC DISORDER
  2. LOVASTATIN [Concomitant]
     Indication: HYPERCHOLESTEROLAEMIA
     Dates: start: 20030101
  3. CLONAZEPAM [Concomitant]
     Indication: ANXIETY
  4. DURAGESIC-50 [Concomitant]
     Dosage: ONE PLACED EVERY 6 DAYS.
     Route: 062
  5. DEPO-ESTRADIOL [Suspect]
     Indication: MENOPAUSE
     Dosage: 5.0
     Dates: start: 20010404, end: 20010615
  6. CARDIZEM [Concomitant]
     Indication: OESOPHAGEAL SPASM
     Dates: start: 20000101
  7. CARDIZEM [Concomitant]
     Indication: BLOOD PRESSURE MANAGEMENT
  8. INDERAL [Concomitant]
     Indication: MIGRAINE
     Route: 048
     Dates: start: 20030101
  9. ACYCLOVIR [Concomitant]
     Indication: HERPES VIRUS INFECTION
     Dosage: DAILY
     Dates: start: 20080101
  10. FENTANYL [Concomitant]
     Indication: PAIN
     Dates: start: 20090601
  11. CARDIZEM [Concomitant]
     Route: 048
  12. OXYCONTIN [Concomitant]
     Dosage: PATIENT CUTS IN HALF
  13. FLUCONAZOLE [Concomitant]
  14. MPA [Suspect]
     Dosage: 2.5 MG (DAILY DOSE), ,
     Dates: end: 20070326
  15. ACYCLOVIR [Concomitant]
     Dosage: DAILY
     Dates: start: 20080101
  16. PROVERA [Suspect]
     Indication: MENOPAUSE
     Dosage: 2.5 MG (DAILY DOSE), ,
     Dates: start: 19850101, end: 20070815
  17. COMBIPATCH [Suspect]
     Indication: MENOPAUSE
     Dosage: 50/140 0.05;
     Dates: start: 20010706, end: 20050515
  18. CLONAZEPAM [Concomitant]
     Indication: TREMOR
     Dates: start: 20070101
  19. TRAZODONE HCL [Concomitant]
     Indication: DEPRESSION
     Dates: start: 20080101
  20. PHENERGAN HCL [Concomitant]
     Dosage: 1-2 EVERY 6 HOURS PRN
     Route: 048
     Dates: start: 20090917
  21. OXYCODONE HCL [Concomitant]
     Dates: start: 20090301
  22. DILTIAZEM [Concomitant]
     Dates: start: 20050101
  23. OXYCODONE HCL [Concomitant]
     Dates: start: 20090301
  24. CLIMARA PRO [Suspect]
     Indication: MENOPAUSE
     Dosage: 0.045/0.01 MG
     Route: 062
     Dates: start: 20061108, end: 20070815
  25. MEDROXYPROGESTERONE [Suspect]
     Indication: MENOPAUSE
     Dosage: 2.5 MG (DAILY DOSE), ,
     Dates: end: 20070326
  26. OXYCODONE HCL [Concomitant]
     Indication: PAIN
     Dates: start: 20090301
  27. ESTRACE [Suspect]
     Indication: CEREBROVASCULAR ACCIDENT PROPHYLAXIS
     Dosage: 2 MG (DAILY DOSE), ,
     Dates: start: 19850101, end: 20040923
  28. TESTIM [Suspect]
     Indication: MENOPAUSE
     Dosage: 1% 5GM
     Dates: start: 20060810, end: 20070815
  29. DYAZIDE [Concomitant]
     Indication: MENIERE'S DISEASE
     Dates: start: 20030101
  30. ZOCOR [Concomitant]
  31. ASPIRIN [Concomitant]
     Indication: CEREBROVASCULAR ACCIDENT PROPHYLAXIS
     Dates: start: 20060101
  32. KLONOPIN [Concomitant]
     Dosage: 1/2-1 TABLET TID
     Route: 048
     Dates: start: 20091103
  33. PREVACID [Concomitant]
  34. DURAGESIC-50 [Concomitant]
     Dosage: ONE PLACED EVERY 6 DAYS.
     Route: 062
  35. SUCRALFATE [Concomitant]
     Dates: start: 20050101
  36. TRAMADOL HYDROCHLORIDE [Concomitant]
     Dates: start: 20050101
  37. TRAMADOL HYDROCHLORIDE [Concomitant]
     Dates: start: 20050101
  38. ESTRATEST [Suspect]
     Indication: MENOPAUSE
     Dosage: 1.25 MG (DAILY DOSE), ,
     Dates: start: 20001227, end: 20070815
  39. PROMETHAZINE [Concomitant]
     Indication: NAUSEA
     Dates: start: 20030101
  40. NYSTATIN [Concomitant]

REACTIONS (4)
  - NON-HODGKIN'S LYMPHOMA STAGE I [None]
  - PAIN [None]
  - DEPRESSION [None]
  - BREAST CANCER [None]
